FAERS Safety Report 6261514-5 (Version None)
Quarter: 2009Q3

REPORT INFORMATION
  Report Type: 
  Country: None (occurrence: None)
  Receive Date: 20090709
  Receipt Date: 20090627
  Transmission Date: 20100115
  Serious: Yes (Hospitalization)
  Sender: FDA-Public Use
  Company Number: US-PFIZER INC-2009227254

PATIENT
  Sex: Male
  Weight: 85.261 kg

DRUGS (2)
  1. CP-751,871 [Suspect]
     Indication: PANCREATIC CARCINOMA METASTATIC
     Dosage: 1760 MG, EVERY 3 WEEKS
     Route: 042
     Dates: start: 20090611
  2. SUNITINIB MALATE [Suspect]
     Indication: PANCREATIC CARCINOMA METASTATIC
     Dosage: 25 MG
     Route: 048
     Dates: start: 20090611, end: 20090613

REACTIONS (1)
  - CEREBROVASCULAR ACCIDENT [None]
